FAERS Safety Report 7305218-6 (Version None)
Quarter: 2011Q1

REPORT INFORMATION
  Report Type: 
  Country: None (occurrence: None)
  Receive Date: 20110222
  Receipt Date: 20110215
  Transmission Date: 20110831
  Serious: Yes (Other)
  Sender: FDA-Public Use
  Company Number: JP-PFIZER INC-2011028541

PATIENT
  Sex: Female

DRUGS (1)
  1. LYRICA [Suspect]
     Route: 048

REACTIONS (3)
  - VIITH NERVE PARALYSIS [None]
  - SWELLING FACE [None]
  - DRY SKIN [None]
